FAERS Safety Report 7262120-6 (Version None)
Quarter: 2011Q1

REPORT INFORMATION
  Report Type: 
  Country: None (occurrence: None)
  Receive Date: 20110130
  Receipt Date: 20101213
  Transmission Date: 20110831
  Serious: No
  Sender: FDA-Public Use
  Company Number: US-ABBOTT-10P-163-0691397-00

PATIENT
  Age: 62 Year
  Sex: Male

DRUGS (6)
  1. LOMOTIL [Concomitant]
     Indication: CROHN'S DISEASE
  2. CELEBREX [Concomitant]
     Indication: ARTHRALGIA
  3. PREDNISONE [Concomitant]
     Indication: CROHN'S DISEASE
  4. VIT D [Concomitant]
     Indication: PRODUCT USED FOR UNKNOWN INDICATION
  5. HUMIRA [Suspect]
     Indication: CROHN'S DISEASE
     Dates: start: 20100901
  6. POTASSIUM [Concomitant]
     Indication: PRODUCT USED FOR UNKNOWN INDICATION

REACTIONS (1)
  - FATIGUE [None]
